FAERS Safety Report 8610765-0 (Version None)
Quarter: 2012Q3

REPORT INFORMATION
  Report Type: 
  Country: None (occurrence: None)
  Receive Date: 20120822
  Receipt Date: 20120815
  Transmission Date: 20120928
  Serious: Yes (Other)
  Sender: FDA-Public Use
  Company Number: US-BAYER-2012-084027

PATIENT
  Age: 58 Year
  Sex: Female

DRUGS (1)
  1. NEXAVAR [Suspect]
     Indication: HEPATIC NEOPLASM MALIGNANT
     Dosage: 1AM AND 1 PM

REACTIONS (5)
  - ARTHRALGIA [None]
  - BLISTER [None]
  - ABASIA [None]
  - DRY SKIN [None]
  - FATIGUE [None]
